FAERS Safety Report 13666881 (Version 1)
Quarter: 2017Q2

REPORT INFORMATION
  Report Type: Spontaneous
  Country: US (occurrence: US)
  Receive Date: 20170619
  Receipt Date: 20170619
  Transmission Date: 20170830
  Serious: No
  Sender: FDA-Public Use
  Company Number: US-ROCHE-1297559

PATIENT
  Sex: Female

DRUGS (3)
  1. XELODA [Suspect]
     Active Substance: CAPECITABINE
     Dosage: EVERT PM
     Route: 048
     Dates: start: 20130630
  2. XELODA [Suspect]
     Active Substance: CAPECITABINE
     Dosage: EVERY AM
     Route: 048
     Dates: start: 20130630
  3. XELODA [Suspect]
     Active Substance: CAPECITABINE
     Indication: BREAST CANCER
     Dosage: EVERY 12 HOURS, 14 DAYS ON, 7 DAYS OFF
     Route: 048
     Dates: start: 20130702

REACTIONS (5)
  - Blister [Unknown]
  - Dry skin [Unknown]
  - Skin fissures [Unknown]
  - Pain in extremity [Unknown]
  - Skin exfoliation [Unknown]
